FAERS Safety Report 7368866-3 (Version None)
Quarter: 2011Q1

REPORT INFORMATION
  Report Type: 
  Country: None (occurrence: None)
  Receive Date: 20110323
  Receipt Date: 20100917
  Transmission Date: 20110831
  Serious: Yes (Hospitalization, Other)
  Sender: FDA-Public Use
  Company Number: US-BAYER-201025707NA

PATIENT
  Sex: Female
  Weight: 61 kg

DRUGS (12)
  1. UNCODEABLE ^UNCLASSIFIABLE^ [Concomitant]
     Indication: PAIN
     Dosage: UNK
     Route: 048
     Dates: start: 20071012
  2. PHENERGAN [Concomitant]
  3. PROMETHAZINE [Concomitant]
     Indication: VOMITING
  4. RHINOCORT [Concomitant]
     Dosage: 32 MCG/24HR, QD
     Route: 045
     Dates: start: 20071222
  5. VICODIN [Concomitant]
  6. PROMETHAZINE [Concomitant]
     Indication: NAUSEA
     Dosage: 25 MG, UNK
     Dates: start: 20080207
  7. YAZ [Suspect]
     Dosage: UNK
     Dates: start: 20071012, end: 20090728
  8. PROTONIX [Concomitant]
     Route: 048
  9. TRI-SPRINTEC [Concomitant]
     Dosage: UNK
     Dates: start: 20090507, end: 20100901
  10. YAZ [Suspect]
     Route: 048
     Dates: start: 20070601, end: 20090801
  11. ALLEGRA-D 12 HOUR [Concomitant]
     Indication: SEASONAL ALLERGY
     Dosage: UNK UNK, BID
     Route: 048
     Dates: start: 20071121
  12. ACIPHEX [Concomitant]

REACTIONS (12)
  - ABDOMINAL PAIN [None]
  - NAUSEA [None]
  - ABDOMINAL PAIN UPPER [None]
  - DECREASED APPETITE [None]
  - ABDOMINAL DISTENSION [None]
  - PAIN [None]
  - GALLBLADDER NON-FUNCTIONING [None]
  - APPETITE DISORDER [None]
  - ERUCTATION [None]
  - FAT INTOLERANCE [None]
  - CHOLECYSTITIS CHRONIC [None]
  - VOMITING [None]
